FAERS Safety Report 4514269-6 (Version None)
Quarter: 2004Q4

REPORT INFORMATION
  Report Type: 
  Country: None (occurrence: None)
  Receive Date: 20040928
  Receipt Date: 20040623
  Transmission Date: 20050328
  Serious: No
  Sender: FDA-Public Use
  Company Number: 04P-163-0264645-00

PATIENT
  Age: 68 Year
  Sex: Female
  Weight: 99.7913 kg

DRUGS (11)
  1. HUMIRA [Suspect]
     Indication: RHEUMATOID ARTHRITIS
     Dosage: 40 MG, 1 IN 2 WK, SUBCUTANEOUS
     Route: 058
     Dates: start: 20040511
  2. METHOTREXATE [Concomitant]
  3. HYDROCYCHLOROQUINE PHOSPHATE [Concomitant]
  4. PREDNISONE [Concomitant]
  5. FOLIC ACID [Concomitant]
  6. RISENDRONATE SODIUM [Concomitant]
  7. LANSOPRAZOLE [Concomitant]
  8. ATORVASTATIN [Concomitant]
  9. GLIMEPIRIDE [Concomitant]
  10. ACTOS [Concomitant]
  11. SERTRALINE HYDROCHLORIDE [Concomitant]

REACTIONS (2)
  - INJECTION SITE BURNING [None]
  - INJECTION SITE VESICLES [None]
